FAERS Safety Report 9830275 (Version 2)
Quarter: 2014Q1

REPORT INFORMATION
  Report Type: Spontaneous
  Country: DE (occurrence: DE)
  Receive Date: 20140120
  Receipt Date: 20140120
  Transmission Date: 20141002
  Serious: Yes (Hospitalization, Other)
  Sender: FDA-Public Use
  Company Number: DE-009507513-1312DEU002162

PATIENT
  Age: 43 Year
  Sex: Male
  Weight: 119.4 kg

DRUGS (9)
  1. SYCREST [Suspect]
     Indication: BIPOLAR DISORDER
     Dosage: 5 MG, QD
     Route: 048
     Dates: start: 201303, end: 20131116
  2. HYPNOREX (LITHIUM) [Concomitant]
     Indication: BIPOLAR DISORDER
     Dosage: 1600 MG, QD
     Route: 048
     Dates: start: 2009
  3. CYMBALTA [Concomitant]
     Indication: DEPRESSION
     Dosage: 90 MG, QD
     Route: 048
     Dates: start: 201303
  4. LAMOTRIGINE [Concomitant]
     Indication: DEPRESSION
     Dosage: 100 MG, UNK
     Route: 048
     Dates: start: 2009
  5. ALPRAZOLAM [Concomitant]
     Indication: PANIC DISORDER
     Dosage: 0.5 MG, UNK
     Route: 048
     Dates: end: 20131028
  6. ALPRAZOLAM [Concomitant]
     Indication: PANIC DISORDER
     Dosage: 0.5 MG, AS REQUIRED
     Route: 048
     Dates: end: 20131028
  7. TAVOR (LORAZEPAM) [Concomitant]
     Indication: PANIC DISORDER
     Dosage: 0.5 MG, UNK
     Route: 048
     Dates: start: 201309
  8. RAMIPRIL [Concomitant]
     Dosage: 10 MG, QD
  9. EUTHYROX [Concomitant]
     Dosage: 75 MICROGRAM, QD
     Route: 048

REACTIONS (7)
  - Blood creatine phosphokinase increased [Recovered/Resolved]
  - Blood bilirubin increased [Recovered/Resolved]
  - Aspartate aminotransferase increased [Recovered/Resolved]
  - Gamma-glutamyltransferase increased [Recovering/Resolving]
  - Chest pain [Recovered/Resolved]
  - Abdominal pain [Recovered/Resolved]
  - Alanine aminotransferase increased [Recovering/Resolving]
